FAERS Safety Report 8429221-8 (Version None)
Quarter: 2012Q2

REPORT INFORMATION
  Report Type: 
  Country: None (occurrence: None)
  Receive Date: 20120612
  Receipt Date: 20120605
  Transmission Date: 20120825
  Serious: Yes (Other)
  Sender: FDA-Public Use
  Company Number: PHHY2012TR049057

PATIENT

DRUGS (1)
  1. DEFERASIROX [Suspect]
     Indication: IRON OVERLOAD
     Dosage: 20 MG/KG, UNK
     Route: 048

REACTIONS (3)
  - BLOOD CREATININE INCREASED [None]
  - SEPSIS [None]
  - PROTEINURIA [None]
